FAERS Safety Report 9999391 (Version 1)
Quarter: 2014Q1

REPORT INFORMATION
  Report Type: Spontaneous
  Country: US (occurrence: None)
  Receive Date: 20140311
  Receipt Date: 20140311
  Transmission Date: 20141002
  Serious: Yes (Hospitalization)
  Sender: FDA-Public Use
  Company Number: None

PATIENT
  Age: 67 Year
  Sex: Male
  Weight: 113.6 kg

DRUGS (1)
  1. ASPIRIN [Suspect]
     Route: 048
     Dates: start: 20090901, end: 20130904

REACTIONS (1)
  - Gastrointestinal haemorrhage [None]
